FAERS Safety Report 9730321 (Version 4)
Quarter: 2014Q3

REPORT INFORMATION
  Report Type: Report from Study
  Country: GB (occurrence: GB)
  Receive Date: 20131204
  Receipt Date: 20140722
  Transmission Date: 20150326
  Serious: Yes (Death, Hospitalization, Other)
  Sender: FDA-Public Use
  Company Number: GB-ROCHE-1309762

PATIENT
  Age: 89 Year
  Sex: Female

DRUGS (5)
  1. BISOPROLOL [Concomitant]
     Active Substance: BISOPROLOL
     Route: 065
     Dates: start: 20121120, end: 20131025
  2. CO-AMILOFRUSE [Concomitant]
     Active Substance: AMILORIDE\FUROSEMIDE
     Route: 065
     Dates: start: 20121023, end: 20131025
  3. ISOSORBIDE MONONITRATE. [Concomitant]
     Active Substance: ISOSORBIDE MONONITRATE
     Route: 065
     Dates: start: 201004, end: 20131025
  4. AMIODARONE [Concomitant]
     Active Substance: AMIODARONE
     Route: 065
     Dates: start: 20111228, end: 20131025
  5. RANIBIZUMAB [Suspect]
     Active Substance: RANIBIZUMAB
     Indication: AGE-RELATED MACULAR DEGENERATION
     Route: 050
     Dates: start: 20130828, end: 20130828

REACTIONS (12)
  - Pneumonia [Fatal]
  - Myocardial ischaemia [Fatal]
  - Pulmonary oedema [Unknown]
  - Lung consolidation [Unknown]
  - Cardiogenic shock [Fatal]
  - Condition aggravated [Unknown]
  - Coronary artery disease [Fatal]
  - Dyspnoea [Unknown]
  - Cardiac failure acute [Fatal]
  - Myocardial infarction [Fatal]
  - Pleural effusion [Unknown]
  - Malaise [Unknown]

NARRATIVE: CASE EVENT DATE: 20131019
